FAERS Safety Report 11540485 (Version 1)
Quarter: 2015Q3

REPORT INFORMATION
  Report Type: Spontaneous
  Country: US (occurrence: US)
  Receive Date: 20150923
  Receipt Date: 20150923
  Transmission Date: 20151125
  Serious: No
  Sender: FDA-Public Use
  Company Number: US-BEH-2015047791

PATIENT
  Sex: Female
  Weight: 51 kg

DRUGS (26)
  1. SOLU-MEDROL [Concomitant]
     Active Substance: METHYLPREDNISOLONE SODIUM SUCCINATE
  2. ZOFRAN [Concomitant]
     Active Substance: ONDANSETRON HYDROCHLORIDE
  3. ACETAMINOPHEN. [Concomitant]
     Active Substance: ACETAMINOPHEN
  4. LMX [Concomitant]
     Active Substance: LIDOCAINE
  5. PRAMOXINE [Concomitant]
     Active Substance: PRAMOXINE
  6. VANICREAM [Concomitant]
     Active Substance: TITANIUM DIOXIDE\ZINC OXIDE
  7. HYDROCORTISONE. [Concomitant]
     Active Substance: HYDROCORTISONE
  8. PROTOPIC [Concomitant]
     Active Substance: TACROLIMUS
  9. PREDNISONE. [Concomitant]
     Active Substance: PREDNISONE
  10. PREVACID [Concomitant]
     Active Substance: LANSOPRAZOLE
  11. DIPHENHYDRAMINE. [Concomitant]
     Active Substance: DIPHENHYDRAMINE
  12. HEPARIN [Concomitant]
     Active Substance: HEPARIN SODIUM
  13. NEXIUM [Concomitant]
     Active Substance: ESOMEPRAZOLE MAGNESIUM
  14. AMMONIUM LACTATE. [Concomitant]
     Active Substance: AMMONIUM LACTATE
  15. DEXTROSE. [Concomitant]
     Active Substance: DEXTROSE
  16. EPIPEN [Concomitant]
     Active Substance: EPINEPHRINE
  17. PLAQUENIL [Concomitant]
     Active Substance: HYDROXYCHLOROQUINE SULFATE
  18. HYDROXYZINE [Concomitant]
     Active Substance: HYDROXYZINE\HYDROXYZINE HYDROCHLORIDE
  19. REMICADE [Concomitant]
     Active Substance: INFLIXIMAB
  20. PRIVIGEN [Suspect]
     Active Substance: HUMAN IMMUNOGLOBULIN G
     Indication: DERMATOMYOSITIS
     Route: 042
  21. SODIUM CHLORIDE. [Concomitant]
     Active Substance: SODIUM CHLORIDE
  22. TRAMADOL. [Concomitant]
     Active Substance: TRAMADOL
  23. PRIVIGEN [Suspect]
     Active Substance: HUMAN IMMUNOGLOBULIN G
     Indication: DERMATOMYOSITIS
     Route: 042
  24. VALIUM [Concomitant]
     Active Substance: DIAZEPAM
  25. FOLIC ACID. [Concomitant]
     Active Substance: FOLIC ACID
  26. TAMIFLU [Concomitant]
     Active Substance: OSELTAMIVIR PHOSPHATE

REACTIONS (2)
  - Epistaxis [Recovered/Resolved]
  - Blood pressure increased [Unknown]
